FAERS Safety Report 25198740 (Version 2)
Quarter: 2025Q2

REPORT INFORMATION
  Report Type: Spontaneous
  Country: US (occurrence: US)
  Receive Date: 20250415
  Receipt Date: 20250506
  Transmission Date: 20250717
  Serious: Yes (Hospitalization, Other)
  Sender: AUROBINDO
  Company Number: US-MLMSERVICE-20250331-PI462084-00123-2

PATIENT
  Age: 53 Year
  Sex: Female

DRUGS (21)
  1. CARBOPLATIN [Interacting]
     Active Substance: CARBOPLATIN
     Indication: Hormone receptor positive breast cancer
     Route: 065
  2. CARBOPLATIN [Interacting]
     Active Substance: CARBOPLATIN
     Indication: HER2 positive breast cancer
  3. CARBOPLATIN [Interacting]
     Active Substance: CARBOPLATIN
     Indication: Invasive ductal breast carcinoma
  4. DOCETAXEL [Interacting]
     Active Substance: DOCETAXEL
     Indication: Hormone receptor positive breast cancer
     Route: 065
  5. DOCETAXEL [Interacting]
     Active Substance: DOCETAXEL
     Indication: HER2 positive breast cancer
  6. DOCETAXEL [Interacting]
     Active Substance: DOCETAXEL
     Indication: Invasive ductal breast carcinoma
  7. PERTUZUMAB [Interacting]
     Active Substance: PERTUZUMAB
     Indication: Hormone receptor positive breast cancer
     Route: 065
  8. PERTUZUMAB [Interacting]
     Active Substance: PERTUZUMAB
     Indication: HER2 positive breast cancer
     Route: 065
  9. PERTUZUMAB [Interacting]
     Active Substance: PERTUZUMAB
     Indication: Invasive ductal breast carcinoma
     Route: 065
  10. TRASTUZUMAB [Interacting]
     Active Substance: TRASTUZUMAB
     Indication: Hormone receptor positive breast cancer
     Route: 065
  11. TRASTUZUMAB [Interacting]
     Active Substance: TRASTUZUMAB
     Indication: HER2 positive breast cancer
     Route: 065
  12. TRASTUZUMAB [Interacting]
     Active Substance: TRASTUZUMAB
     Indication: Invasive ductal breast carcinoma
  13. APREPITANT [Concomitant]
     Active Substance: APREPITANT
     Indication: Premedication
     Route: 065
  14. DEXAMETHASONE [Concomitant]
     Active Substance: DEXAMETHASONE
     Indication: Premedication
     Route: 065
  15. PALONOSETRON [Concomitant]
     Active Substance: PALONOSETRON
     Indication: Premedication
     Route: 065
  16. PEGFILGRASTIM [Concomitant]
     Active Substance: PEGFILGRASTIM
     Indication: Product used for unknown indication
     Route: 065
  17. DIPHENHYDRAMINE [Concomitant]
     Active Substance: DIPHENHYDRAMINE
     Indication: Premedication
     Route: 065
  18. FAMOTIDINE [Concomitant]
     Active Substance: FAMOTIDINE
     Indication: Premedication
     Route: 065
  19. PACLITAXEL [Concomitant]
     Active Substance: PACLITAXEL
     Indication: Product used for unknown indication
     Route: 065
  20. ADO-TRASTUZUMAB EMTANSINE [Concomitant]
     Active Substance: ADO-TRASTUZUMAB EMTANSINE
     Indication: Product used for unknown indication
     Route: 065
  21. ANASTROZOLE [Concomitant]
     Active Substance: ANASTROZOLE
     Indication: Product used for unknown indication
     Route: 065

REACTIONS (2)
  - Cystitis haemorrhagic [Recovered/Resolved]
  - Drug interaction [Recovered/Resolved]
